FAERS Safety Report 8809909 (Version 1)
Quarter: 2012Q4

REPORT INFORMATION
  Report Type: 
  Country: US (occurrence: US)
  Receive Date: 20120926
  Receipt Date: 20120926
  Transmission Date: 20130627
  Serious: Yes (Hospitalization, Other)
  Sender: FDA-Public Use
  Company Number: US-PFIZER INC-2008023677

PATIENT
  Age: 43 Year
  Sex: Male
  Weight: 100 kg

DRUGS (8)
  1. BLINDED NO SUBJECT DRUG [Suspect]
     Indication: RENAL CELL CARCINOMA
     Dosage: UNK mg, cyclic
     Route: 048
     Dates: start: 20070124, end: 20080111
  2. BLINDED PLACEBO [Suspect]
     Indication: RENAL CELL CARCINOMA
     Dosage: UNK mg, cyclic
     Route: 048
     Dates: start: 20070124, end: 20080111
  3. SORAFENIB [Suspect]
     Indication: RENAL CELL CARCINOMA
     Dosage: UNK mg, cyclic
     Route: 048
     Dates: start: 20070124, end: 20080111
  4. SUNITINIB MALATE [Suspect]
     Indication: RENAL CELL CARCINOMA
     Dosage: UNK mg, cyclic
     Route: 048
     Dates: start: 20070124, end: 20080111
  5. LEVOTHYROXINE [Concomitant]
  6. PRILOSEC [Concomitant]
  7. CRESTOR [Concomitant]
  8. TENORMIN [Concomitant]

REACTIONS (5)
  - Second primary malignancy [Recovering/Resolving]
  - Leukaemia [Recovering/Resolving]
  - Blood cholesterol increased [Recovering/Resolving]
  - Hypertriglyceridaemia [Recovering/Resolving]
  - Hypothyroidism [Unknown]
